FAERS Safety Report 19495802 (Version 1)
Quarter: 2021Q3

REPORT INFORMATION
  Report Type: Report from Study
  Country: IN (occurrence: IN)
  Receive Date: 20210706
  Receipt Date: 20210706
  Transmission Date: 20211014
  Serious: Yes (Death)
  Sender: FDA-Public Use
  Company Number: NVSC2021IN122506

PATIENT
  Age: 71 Year
  Sex: Male

DRUGS (3)
  1. VOTRIENT [Suspect]
     Active Substance: PAZOPANIB HYDROCHLORIDE
     Dosage: 400 MG, QOD (400MG 1 AND 2 ALTERNATIVE DAYS)
     Route: 065
  2. VOTRIENT [Suspect]
     Active Substance: PAZOPANIB HYDROCHLORIDE
     Indication: RENAL CELL CARCINOMA
     Dosage: 400 MG OD + 800 MG OD, OTHER
     Route: 065
     Dates: start: 20180806, end: 20210420
  3. VOTRIENT [Suspect]
     Active Substance: PAZOPANIB HYDROCHLORIDE
     Dosage: 400 MG, QD
     Route: 065
     Dates: start: 20210421

REACTIONS (3)
  - Inappropriate schedule of product administration [Unknown]
  - Cardiac arrest [Fatal]
  - Drug intolerance [Unknown]

NARRATIVE: CASE EVENT DATE: 202103
